FAERS Safety Report 19673027 (Version 2)
Quarter: 2021Q3

REPORT INFORMATION
  Report Type: Spontaneous
  Country: US (occurrence: US)
  Receive Date: 20210809
  Receipt Date: 20210816
  Transmission Date: 20211014
  Serious: Yes (Hospitalization, Other)
  Sender: FDA-Public Use
  Company Number: US-UNITED THERAPEUTICS-UNT-2021-015086

PATIENT
  Age: 62 Year
  Sex: Male

DRUGS (2)
  1. REMODULIN [Suspect]
     Active Substance: TREPROSTINIL
     Indication: PULMONARY ARTERIAL HYPERTENSION
     Dosage: UNK, CONTINUING
     Route: 058
     Dates: start: 20200807
  2. REMODULIN [Suspect]
     Active Substance: TREPROSTINIL
     Dosage: 0.0449 ?G/KG, CONTINUING
     Route: 058

REACTIONS (4)
  - Dyspnoea [Recovered/Resolved]
  - Pyrexia [Recovered/Resolved]
  - Pneumonia [Recovered/Resolved]
  - Sepsis [Unknown]

NARRATIVE: CASE EVENT DATE: 20210803
